FAERS Safety Report 4441775-5 (Version None)
Quarter: 2004Q3

REPORT INFORMATION
  Report Type: 
  Country: None (occurrence: None)
  Receive Date: 20040907
  Receipt Date: 20031219
  Transmission Date: 20050211
  Serious: Yes (Hospitalization, Disabling, Other)
  Sender: FDA-Public Use
  Company Number: US-MERCK-0312USA02233

PATIENT
  Age: 45 Year
  Sex: Male
  Weight: 69 kg

DRUGS (7)
  1. ALBUTEROL [Concomitant]
     Route: 065
  2. TIAZAC [Concomitant]
     Route: 065
  3. ADVAIR DISKUS 100/50 [Concomitant]
     Route: 065
     Dates: end: 20040101
  4. SINGULAIR [Suspect]
     Indication: ASTHMA
     Route: 048
     Dates: start: 19990101, end: 20040101
  5. PROTONIX [Concomitant]
     Route: 065
  6. ULTRAM [Concomitant]
     Route: 065
  7. AMBIEN [Concomitant]
     Route: 065

REACTIONS (3)
  - EOSINOPHILIC MYOCARDITIS [None]
  - HYPEREOSINOPHILIC SYNDROME [None]
  - PULMONARY GRANULOMA [None]
